FAERS Safety Report 18903121 (Version 1)
Quarter: 2021Q1

REPORT INFORMATION
  Report Type: Other
  Country: FR (occurrence: FR)
  Receive Date: 20210216
  Receipt Date: 20210216
  Transmission Date: 20210420
  Serious: Yes (Disabling)
  Sender: FDA-Public Use
  Company Number: FR-GE HEALTHCARE LIFE SCIENCES-2021CSU000755

PATIENT

DRUGS (4)
  1. CLARISCAN [Suspect]
     Active Substance: GADOTERATE MEGLUMINE
     Indication: MAGNETIC RESONANCE IMAGING
     Dosage: 0.5 MMOL, SINGLE
     Route: 041
     Dates: start: 20201209, end: 20201209
  2. CLARISCAN [Suspect]
     Active Substance: GADOTERATE MEGLUMINE
     Indication: PRODUCT USED FOR UNKNOWN INDICATION
  3. INORIAL [Concomitant]
     Active Substance: BILASTINE
     Indication: CONJUNCTIVITIS ALLERGIC
     Route: 048
  4. BETASERC [Concomitant]
     Active Substance: BETAHISTINE
     Indication: VERTIGO
     Route: 048

REACTIONS (6)
  - Infusion site extravasation [Recovered/Resolved]
  - Oedema peripheral [Recovered/Resolved]
  - Dactylitis [Not Recovered/Not Resolved]
  - Oedema peripheral [Not Recovered/Not Resolved]
  - Pain in extremity [Not Recovered/Not Resolved]
  - Chillblains [Not Recovered/Not Resolved]

NARRATIVE: CASE EVENT DATE: 20201209
